FAERS Safety Report 21634038 (Version 3)
Quarter: 2022Q4

REPORT INFORMATION
  Report Type: Report from Study
  Country: IT (occurrence: IT)
  Receive Date: 20221123
  Receipt Date: 20221220
  Transmission Date: 20230113
  Serious: Yes (Hospitalization)
  Sender: FDA-Public Use
  Company Number: IT-PFIZER INC-PV202200107886

PATIENT
  Age: 36 Year
  Sex: Female

DRUGS (3)
  1. CYTOTEC [Suspect]
     Active Substance: MISOPROSTOL
     Indication: Abortion induced
     Dosage: 200 UG, 2X/DAY
     Route: 048
     Dates: start: 20170804, end: 20170804
  2. MIFEPRISTONE [Suspect]
     Active Substance: MIFEPRISTONE
     Indication: Abortion induced
     Dosage: 200 MG
     Route: 048
     Dates: start: 20170802, end: 20170802
  3. CLARITHROMYCIN [Concomitant]
     Active Substance: CLARITHROMYCIN
     Indication: Antibiotic prophylaxis
     Dosage: 500 MG
     Route: 048
     Dates: start: 20170804, end: 20170804

REACTIONS (2)
  - Abortion induced incomplete [Recovered/Resolved]
  - Haemorrhage [Recovered/Resolved]

NARRATIVE: CASE EVENT DATE: 20170913
